FAERS Safety Report 4311295-7 (Version None)
Quarter: 2004Q1

REPORT INFORMATION
  Report Type: 
  Country: None (occurrence: None)
  Receive Date: 20040304
  Receipt Date: 20040206
  Transmission Date: 20041129
  Serious: Yes (Other)
  Sender: FDA-Public Use
  Company Number: JP-GLAXOSMITHKLINE-B0323056A

PATIENT
  Age: 24 Year
  Sex: Female
  Weight: 55 kg

DRUGS (13)
  1. PAXIL [Suspect]
     Indication: PANIC DISORDER
     Route: 048
     Dates: start: 20031101, end: 20031201
  2. DIAZEPAM [Concomitant]
     Indication: DRUG USE FOR UNKNOWN INDICATION
     Dosage: 6MG PER DAY
     Route: 048
     Dates: start: 20031121, end: 20031214
  3. NITRAZEPAM [Concomitant]
     Indication: INSOMNIA
     Dosage: 10MG PER DAY
     Route: 048
     Dates: start: 20031204, end: 20031221
  4. FLUNITRAZEPAM [Concomitant]
     Indication: INSOMNIA
     Route: 048
     Dates: start: 20031121
  5. FLUVOXAMINE MALEATE [Concomitant]
     Indication: PANIC DISORDER
     Route: 065
  6. CLOMIPRAMINE HCL [Concomitant]
     Indication: PANIC DISORDER
     Route: 065
  7. ETIZOLAM [Concomitant]
     Indication: DRUG USE FOR UNKNOWN INDICATION
     Route: 065
  8. METOCLOPRAMIDE HCL [Concomitant]
     Indication: DRUG USE FOR UNKNOWN INDICATION
     Route: 065
  9. TIZANIDINE HYDROCHLORIDE [Concomitant]
     Indication: DRUG USE FOR UNKNOWN INDICATION
     Route: 065
  10. VALPROATE SODIUM [Concomitant]
     Indication: DRUG USE FOR UNKNOWN INDICATION
     Route: 065
  11. ZOLPIDEM TARTRATE [Concomitant]
     Indication: DRUG USE FOR UNKNOWN INDICATION
     Route: 065
  12. BROMAZEPAM [Concomitant]
     Indication: DRUG USE FOR UNKNOWN INDICATION
     Route: 065
  13. BROTIZOLAM [Concomitant]
     Indication: DRUG USE FOR UNKNOWN INDICATION
     Route: 065

REACTIONS (6)
  - CHEST PAIN [None]
  - DIAPHRAGMALGIA [None]
  - DRUG EFFECT DECREASED [None]
  - GALACTORRHOEA [None]
  - HICCUPS [None]
  - PANIC DISORDER [None]
